FAERS Safety Report 18427872 (Version 1)
Quarter: 2020Q4

REPORT INFORMATION
  Report Type: Spontaneous
  Country: US (occurrence: US)
  Receive Date: 20201026
  Receipt Date: 20201026
  Transmission Date: 20210114
  Serious: Yes (Other)
  Sender: FDA-Public Use
  Company Number: US-BAUSCH-BL-2020-029948

PATIENT
  Age: 31 Year
  Sex: Female

DRUGS (2)
  1. LORAZEPAM. [Suspect]
     Active Substance: LORAZEPAM
     Indication: PROPHYLAXIS AGAINST ALCOHOLIC WITHDRAWAL SYNDROME
     Dosage: ONETIME DOSE
     Route: 065
  2. FLUOXETINE [Suspect]
     Active Substance: FLUOXETINE HYDROCHLORIDE
     Indication: MAJOR DEPRESSION
     Route: 065

REACTIONS (4)
  - Treatment noncompliance [Unknown]
  - Alcoholism [Unknown]
  - Maternal exposure during pregnancy [Unknown]
  - Normal newborn [Unknown]
